FAERS Safety Report 6976743 (Version 2)
Quarter: 2014Q1

REPORT INFORMATION
  Report Type: Spontaneous
  Country: US (occurrence: None)
  Receive Date: 20090416
  Receipt Date: 20140206
  Transmission Date: 20141002
  Serious: Yes (Hospitalization, Other)
  Sender: FDA-Public Use
  Company Number: 2009S1003237

PATIENT
  Age: 68 Year
  Sex: Female

DRUGS (6)
  1. FLEET PHOSPHO-SODA [Suspect]
     Indication: COLONOSCOPY
     Dosage: 90 ML, 2 IN 24 HOURS, ORAL
     Dates: start: 20070508, end: 20070509
  2. NORVASC (AMLODIPINE BESILATE) [Concomitant]
  3. LISINOPRIL (LISINOPRIL) [Concomitant]
  4. SYNTHROID (LEVOTHYROXINE SODIUM) [Concomitant]
  5. HYDROCHLOROTHIAZIDE (HYDROCHLOROTHIAZIDE) [Concomitant]
  6. LEXAPRO (ESCITALOPRAM OXALATE) [Concomitant]

REACTIONS (5)
  - Toxicity to various agents [None]
  - Renal failure acute [None]
  - Anaemia [None]
  - Haemodialysis [None]
  - Hyperphosphataemia [None]
